FAERS Safety Report 14889872 (Version 1)
Quarter: 2018Q2

REPORT INFORMATION
  Report Type: Spontaneous
  Country: IT (occurrence: IT)
  Receive Date: 20180514
  Receipt Date: 20180514
  Transmission Date: 20180711
  Serious: Yes (Other)
  Sender: FDA-Public Use
  Company Number: IT-ABBVIE-18S-083-2352057-00

PATIENT
  Age: 44 Year
  Sex: Female

DRUGS (2)
  1. VIMPAT [Suspect]
     Active Substance: LACOSAMIDE
     Indication: EPILEPSY
     Route: 048
  2. DEPAKIN [Suspect]
     Active Substance: VALPROATE SODIUM
     Indication: EPILEPSY
     Route: 048

REACTIONS (5)
  - Disorganised speech [Unknown]
  - Aphasia [Unknown]
  - Gaze palsy [Unknown]
  - Hyperammonaemia [Unknown]
  - Tonic clonic movements [Unknown]

NARRATIVE: CASE EVENT DATE: 20171017
